FAERS Safety Report 5615602-4 (Version None)
Quarter: 2008Q1

REPORT INFORMATION
  Report Type: 
  Country: None (occurrence: None)
  Receive Date: 20080206
  Receipt Date: 20080128
  Transmission Date: 20080703
  Serious: Yes (Congenital Anomaly)
  Sender: FDA-Public Use
  Company Number: A0681887A

PATIENT
  Sex: Female

DRUGS (2)
  1. PAXIL [Suspect]
     Indication: ANXIETY
     Dosage: 20MG PER DAY
     Dates: start: 20000101
  2. PRENATAL VITAMINS [Concomitant]

REACTIONS (9)
  - ANKYLOGLOSSIA CONGENITAL [None]
  - ANORECTAL DISORDER [None]
  - CONGENITAL ABSENCE OF VERTEBRA [None]
  - CONGENITAL OESOPHAGEAL ANOMALY [None]
  - DRUG EXPOSURE DURING PREGNANCY [None]
  - FINGER DEFORMITY [None]
  - MULTI-ORGAN DISORDER [None]
  - VAGINAL DISORDER [None]
  - VESICOURETERIC REFLUX [None]
